FAERS Safety Report 8620796-2 (Version None)
Quarter: 2012Q3

REPORT INFORMATION
  Report Type: 
  Country: None (occurrence: None)
  Receive Date: 20120824
  Receipt Date: 20120810
  Transmission Date: 20120928
  Serious: Yes (Other)
  Sender: FDA-Public Use
  Company Number: US-ROCHE-1088496

PATIENT
  Sex: Female

DRUGS (4)
  1. RITUXAN [Suspect]
     Dates: start: 20120306
  2. RITUXAN [Suspect]
     Indication: RHEUMATOID ARTHRITIS
     Route: 042
     Dates: start: 20110903
  3. RITUXAN [Suspect]
     Dates: start: 20120320
  4. GABAPENTIN [Concomitant]
     Dates: start: 20120803

REACTIONS (12)
  - PERIPHERAL NERVE INFECTION [None]
  - TREMOR [None]
  - KNEE ARTHROPLASTY [None]
  - COLITIS [None]
  - PARAESTHESIA [None]
  - URINARY TRACT INFECTION [None]
  - SINUSITIS [None]
  - FEELING ABNORMAL [None]
  - BLOOD PRESSURE [None]
  - DIARRHOEA [None]
  - BLOOD PRESSURE INCREASED [None]
  - ARTHRALGIA [None]
